FAERS Safety Report 8915962 (Version 1)
Quarter: 2012Q4

REPORT INFORMATION
  Report Type: 
  Country: US (occurrence: US)
  Receive Date: 20121119
  Receipt Date: 20121119
  Transmission Date: 20130627
  Serious: Yes (Other)
  Sender: FDA-Public Use
  Company Number: US-JNJFOC-20121104317

PATIENT
  Age: 19 Year
  Sex: Female

DRUGS (3)
  1. INVEGA SUSTENNA [Suspect]
     Indication: SCHIZOPHRENIA
     Dosage: first initiation dose
     Route: 030
     Dates: start: 20121017
  2. INVEGA SUSTENNA [Suspect]
     Indication: SCHIZOPHRENIA
     Route: 030
     Dates: start: 20121106
  3. COGENTIN [Concomitant]
     Indication: OCULOGYRIC CRISIS
     Route: 048

REACTIONS (4)
  - Psychotic behaviour [Unknown]
  - Disturbance in social behaviour [Unknown]
  - Paranoia [Unknown]
  - Drug dose omission [Recovered/Resolved]
